FAERS Safety Report 23252760 (Version 1)
Quarter: 2023Q4

REPORT INFORMATION
  Report Type: Spontaneous
  Country: US (occurrence: US)
  Receive Date: 20231201
  Receipt Date: 20231201
  Transmission Date: 20240109
  Serious: Yes (Other)
  Sender: FDA-Public Use
  Company Number: US-BRISTOL-MYERS SQUIBB COMPANY-2023-170746

PATIENT
  Age: 34 Year
  Sex: Male

DRUGS (2)
  1. TRIAMCINOLONE ACETONIDE [Interacting]
     Active Substance: TRIAMCINOLONE ACETONIDE
     Indication: HIV infection
     Dosage: TOTAL OF NINE INJECTIONS OVER THREE MONTHS AT AN UNKNOWN DOSE?0.29 MCG/DL (N{0.1 MCG/DL)
     Route: 008
  2. COBICISTAT [Interacting]
     Active Substance: COBICISTAT
     Indication: HIV infection

REACTIONS (2)
  - Drug interaction [Unknown]
  - Cushing^s syndrome [Recovered/Resolved]
